FAERS Safety Report 7314076-5 (Version None)
Quarter: 2011Q1

REPORT INFORMATION
  Report Type: 
  Country: None (occurrence: None)
  Receive Date: 20110225
  Receipt Date: 20100521
  Transmission Date: 20110831
  Serious: No
  Sender: FDA-Public Use
  Company Number: US-MYLANLABS-2010S1007359

PATIENT
  Age: 17 Year
  Sex: Male
  Weight: 77.11 kg

DRUGS (1)
  1. AMNESTEEM [Suspect]
     Indication: ACNE
     Dates: start: 20100413, end: 20100414

REACTIONS (3)
  - HEADACHE [None]
  - VOMITING [None]
  - NAUSEA [None]
